FAERS Safety Report 21599563 (Version 1)
Quarter: 2022Q4

REPORT INFORMATION
  Report Type: Spontaneous
  Country: None (occurrence: CA)
  Receive Date: 20221115
  Receipt Date: 20221115
  Transmission Date: 20230112
  Serious: Yes (Hospitalization)
  Sender: FDA-Public Use
  Company Number: CA-B.Braun Medical Inc.-2134905

PATIENT
  Sex: Female

DRUGS (19)
  1. BUPIVACAINE HYDROCHLORIDE WITH DEXTROSE [Suspect]
     Active Substance: BUPIVACAINE HYDROCHLORIDE
     Indication: Epidural anaesthesia
  2. ASPIRIN [Suspect]
     Active Substance: ASPIRIN
  3. AZATHIOPRINE [Suspect]
     Active Substance: AZATHIOPRINE
  4. CALCIUM CHLORIDE\POTASSIUM CHLORIDE\SODIUM LACTATE [Suspect]
     Active Substance: CALCIUM CHLORIDE\POTASSIUM CHLORIDE\SODIUM LACTATE
  5. CARBETOCIN [Suspect]
     Active Substance: CARBETOCIN
  6. CARBETOCIN [Suspect]
     Active Substance: CARBETOCIN
  7. EPINEPHRINE [Suspect]
     Active Substance: EPINEPHRINE
  8. ESCITALOPRAM [Suspect]
     Active Substance: ESCITALOPRAM OXALATE
  9. FENTANYL CITRATE [Suspect]
     Active Substance: FENTANYL CITRATE
  10. LACTATED RINGERS SOLUTION [Suspect]
     Active Substance: CALCIUM CHLORIDE\POTASSIUM CHLORIDE\SODIUM CHLORIDE\SODIUM LACTATE
  11. LANSOPRAZOLE [Suspect]
     Active Substance: LANSOPRAZOLE
  12. LIDOCAINE [Suspect]
     Active Substance: LIDOCAINE
  13. LIDOCAINE\NOREPINEPHRINE [Suspect]
     Active Substance: LIDOCAINE\NOREPINEPHRINE
  14. METHYLDOPA [Suspect]
     Active Substance: METHYLDOPA
  15. MORPHINE SULFATE [Suspect]
     Active Substance: MORPHINE SULFATE
  16. PHENYLEPHRINE HYDROCHLORIDE [Suspect]
     Active Substance: PHENYLEPHRINE HYDROCHLORIDE
  17. ALBUTEROL [Suspect]
     Active Substance: ALBUTEROL
  18. TACROLIMUS [Suspect]
     Active Substance: TACROLIMUS
  19. TINZAPARIN [Suspect]
     Active Substance: TINZAPARIN

REACTIONS (2)
  - Maternal exposure timing unspecified [Unknown]
  - Premature baby [Unknown]
